FAERS Safety Report 25729198 (Version 1)
Quarter: 2025Q3

REPORT INFORMATION
  Report Type: Spontaneous
  Country: CA (occurrence: CA)
  Receive Date: 20250827
  Receipt Date: 20250827
  Transmission Date: 20251021
  Serious: Yes (Hospitalization, Other)
  Sender: CELLTRION
  Company Number: CA-CELLTRION INC.-2025CA029436

PATIENT

DRUGS (33)
  1. INFLIXIMAB [Suspect]
     Active Substance: INFLIXIMAB
     Indication: Crohn^s disease
     Route: 042
  2. INFLIXIMAB [Suspect]
     Active Substance: INFLIXIMAB
     Route: 042
  3. INFLIXIMAB [Suspect]
     Active Substance: INFLIXIMAB
     Route: 042
  4. INFLIXIMAB [Suspect]
     Active Substance: INFLIXIMAB
     Route: 042
  5. INFLIXIMAB [Suspect]
     Active Substance: INFLIXIMAB
     Route: 042
  6. INFLIXIMAB [Suspect]
     Active Substance: INFLIXIMAB
     Route: 042
  7. INFLIXIMAB [Suspect]
     Active Substance: INFLIXIMAB
     Route: 042
  8. INFLIXIMAB [Suspect]
     Active Substance: INFLIXIMAB
     Route: 042
  9. INFLIXIMAB [Suspect]
     Active Substance: INFLIXIMAB
     Route: 042
  10. INFLIXIMAB [Suspect]
     Active Substance: INFLIXIMAB
     Route: 042
  11. INFLIXIMAB [Suspect]
     Active Substance: INFLIXIMAB
     Route: 042
  12. INFLIXIMAB [Suspect]
     Active Substance: INFLIXIMAB
     Route: 042
  13. INFLIXIMAB [Suspect]
     Active Substance: INFLIXIMAB
     Route: 042
  14. INFLIXIMAB [Suspect]
     Active Substance: INFLIXIMAB
     Route: 042
  15. INFLIXIMAB [Suspect]
     Active Substance: INFLIXIMAB
     Route: 042
  16. INFLIXIMAB [Suspect]
     Active Substance: INFLIXIMAB
     Route: 042
  17. INFLIXIMAB [Suspect]
     Active Substance: INFLIXIMAB
     Route: 042
  18. INFLIXIMAB [Suspect]
     Active Substance: INFLIXIMAB
     Route: 042
  19. INFLIXIMAB [Suspect]
     Active Substance: INFLIXIMAB
     Route: 042
  20. INFLIXIMAB [Suspect]
     Active Substance: INFLIXIMAB
     Route: 042
  21. INFLIXIMAB [Suspect]
     Active Substance: INFLIXIMAB
     Route: 042
  22. INFLIXIMAB [Suspect]
     Active Substance: INFLIXIMAB
     Route: 042
  23. INFLIXIMAB [Suspect]
     Active Substance: INFLIXIMAB
     Route: 042
  24. INFLIXIMAB [Suspect]
     Active Substance: INFLIXIMAB
     Route: 042
  25. AZATHIOPRINE [Concomitant]
     Active Substance: AZATHIOPRINE
  26. CIPRO [Concomitant]
     Active Substance: CIPROFLOXACIN HYDROCHLORIDE
  27. DAPAGLIFLOZIN PROPANEDIOL [Concomitant]
     Active Substance: DAPAGLIFLOZIN PROPANEDIOL
  28. FLAGYL [Concomitant]
     Active Substance: METRONIDAZOLE\METRONIDAZOLE HYDROCHLORIDE
  29. LIPIDIL [Concomitant]
     Active Substance: FENOFIBRATE
  30. LIPITOR [Concomitant]
     Active Substance: ATORVASTATIN CALCIUM
  31. FISH OIL [Concomitant]
     Active Substance: FISH OIL
  32. RAMIPRIL [Concomitant]
     Active Substance: RAMIPRIL
  33. SEMAGLUTIDE [Concomitant]
     Active Substance: SEMAGLUTIDE

REACTIONS (15)
  - Anal fissure [Recovered/Resolved]
  - Condition aggravated [Recovered/Resolved]
  - Synovial cyst [Recovered/Resolved]
  - Neuralgia [Recovered/Resolved]
  - Drug level decreased [Recovered/Resolved]
  - Arthralgia [Recovered/Resolved]
  - Fatigue [Recovered/Resolved]
  - Abscess [Recovered/Resolved]
  - Anal abscess [Recovered/Resolved]
  - Herpes zoster [Recovered/Resolved]
  - Pneumonia [Recovered/Resolved]
  - Therapeutic response shortened [Recovered/Resolved]
  - Intentional product use issue [Recovered/Resolved]
  - Off label use [Recovered/Resolved]
  - Intentional product use issue [Unknown]
